FAERS Safety Report 13938107 (Version 1)
Quarter: 2017Q3

REPORT INFORMATION
  Report Type: Spontaneous
  Country: DE (occurrence: DE)
  Receive Date: 20170905
  Receipt Date: 20170905
  Transmission Date: 20171127
  Serious: Yes (Congenital Anomaly, Other)
  Sender: FDA-Public Use
  Company Number: DE-ALLERGAN-1749678US

PATIENT
  Sex: Male
  Weight: 3.31 kg

DRUGS (4)
  1. BALDRIAN [Concomitant]
     Indication: ANXIETY DISORDER
     Route: 064
  2. FOLIC ACID. [Concomitant]
     Active Substance: FOLIC ACID
     Indication: PROPHYLAXIS OF NEURAL TUBE DEFECT
     Route: 064
  3. PROTAPHANE [Concomitant]
     Active Substance: INSULIN HUMAN
     Indication: GESTATIONAL DIABETES
     Dosage: UNK, SINGLE
     Route: 064
  4. ESCITALOPRAM OXALATE - BP [Suspect]
     Active Substance: ESCITALOPRAM OXALATE
     Indication: EXPOSURE DURING PREGNANCY
     Dosage: UNK
     Route: 064
     Dates: start: 20160306, end: 20161114

REACTIONS (8)
  - Selective eating disorder [Recovered/Resolved]
  - Cryptorchism [Unknown]
  - Congenital pulmonary hypertension [Recovered/Resolved]
  - Foetal exposure during pregnancy [Unknown]
  - Congenital tricuspid valve incompetence [Recovered/Resolved]
  - Atrial septal defect [Not Recovered/Not Resolved]
  - Pulmonary artery stenosis congenital [Recovered/Resolved]
  - Neonatal respiratory distress syndrome [Recovered/Resolved]

NARRATIVE: CASE EVENT DATE: 20161114
